FAERS Safety Report 18736383 (Version 2)
Quarter: 2021Q1

REPORT INFORMATION
  Report Type: Report from Study
  Country: US (occurrence: US)
  Receive Date: 20210113
  Receipt Date: 20210201
  Transmission Date: 20210419
  Serious: Yes (Hospitalization)
  Sender: FDA-Public Use
  Company Number: NVSC2020US195176

PATIENT
  Age: 17 Year
  Sex: Male

DRUGS (8)
  1. METHOTREXATE. [Suspect]
     Active Substance: METHOTREXATE
     Indication: ACUTE LYMPHOCYTIC LEUKAEMIA
     Dosage: 15 MG
     Route: 037
     Dates: start: 20180924
  2. METHOTREXATE. [Suspect]
     Active Substance: METHOTREXATE
     Dosage: 37.5 MG, QW
     Route: 048
     Dates: start: 20200413
  3. INC424A [Suspect]
     Active Substance: RUXOLITINIB
     Indication: ACUTE LYMPHOCYTIC LEUKAEMIA
     Dosage: 100 MG, BID
     Route: 048
     Dates: start: 20180924, end: 20200315
  4. VINCRISTINE [Suspect]
     Active Substance: VINCRISTINE
     Indication: ACUTE LYMPHOCYTIC LEUKAEMIA
     Dosage: 2 MG, UNKNOWN
     Route: 042
     Dates: start: 20181008
  5. MERCAPTOPURINE. [Suspect]
     Active Substance: MERCAPTOPURINE
     Dosage: 300 MG, QW
     Route: 048
     Dates: start: 20200413
  6. INC424A [Suspect]
     Active Substance: RUXOLITINIB
     Dosage: 100 MG, BID
     Route: 048
     Dates: start: 20200427
  7. MERCAPTOPURINE. [Suspect]
     Active Substance: MERCAPTOPURINE
     Indication: ACUTE LYMPHOCYTIC LEUKAEMIA
     Dosage: 300 MG, QW
     Route: 048
     Dates: start: 20180924, end: 20200329
  8. METHOTREXATE. [Suspect]
     Active Substance: METHOTREXATE
     Dosage: 37.5 MG, QW
     Route: 048
     Dates: start: 20190819, end: 20200323

REACTIONS (1)
  - Febrile neutropenia [Recovered/Resolved]

NARRATIVE: CASE EVENT DATE: 20200406
